FAERS Safety Report 4774585-X (Version None)
Quarter: 2005Q3

REPORT INFORMATION
  Report Type: 
  Country: None (occurrence: None)
  Receive Date: 20050919
  Receipt Date: 20050907
  Transmission Date: 20060218
  Serious: Yes (Other)
  Sender: FDA-Public Use
  Company Number: 217555

PATIENT
  Age: 60 Year
  Sex: Male

DRUGS (13)
  1. RITUXAN [Suspect]
     Indication: NON-HODGKIN'S LYMPHOMA
     Dates: start: 20040915
  2. CYCLOPHOSPHAMIDE [Concomitant]
  3. VINCRISTINE [Concomitant]
  4. DOXORUBICIN HYDROCHLORIDE [Concomitant]
  5. PREDNISONE [Concomitant]
  6. MECOBALAMIN (MECOBALAMIN) [Concomitant]
  7. GRANISETRON  HCL [Concomitant]
  8. BRUFEN (IBUPROFEN) [Concomitant]
  9. FAMOTIDINE [Concomitant]
  10. POLARAMINE [Concomitant]
  11. ALUMINUM HYDROXIDE W MAGNESIUM HYDROXIDE (ALUMINUM HYDROXIDE, MAGNESIU [Concomitant]
  12. MAGNESIUM OXIDE (MAGNESIUM OXIDE) [Concomitant]
  13. SENNOSIDE (SENNOSIDES) [Concomitant]

REACTIONS (6)
  - ABDOMINAL DISTENSION [None]
  - BLOOD AMYLASE INCREASED [None]
  - HYPOAESTHESIA [None]
  - NAUSEA [None]
  - NEUTROPHIL COUNT DECREASED [None]
  - WHITE BLOOD CELL COUNT DECREASED [None]
